FAERS Safety Report 11104363 (Version 2)
Quarter: 2015Q3

REPORT INFORMATION
  Report Type: Report from Study
  Country: US (occurrence: US)
  Receive Date: 20150511
  Receipt Date: 20150715
  Transmission Date: 20151125
  Serious: Yes (Death)
  Sender: FDA-Public Use
  Company Number: US-SA-2015SA061840

PATIENT
  Age: 59 Year
  Sex: Female

DRUGS (1)
  1. RENVELA [Suspect]
     Active Substance: SEVELAMER CARBONATE
     Dosage: 800 MG: 03 TABLETS, QID
     Route: 048
     Dates: start: 20140512, end: 20150403

REACTIONS (1)
  - Death [Fatal]

NARRATIVE: CASE EVENT DATE: 20150403
